FAERS Safety Report 6424726-3 (Version None)
Quarter: 2009Q4

REPORT INFORMATION
  Report Type: 
  Country: None (occurrence: None)
  Receive Date: 20091029
  Receipt Date: 20091013
  Transmission Date: 20100525
  Serious: Yes (Hospitalization)
  Sender: FDA-Public Use
  Company Number: DSA_41853_2009

PATIENT
  Age: 82 Year
  Sex: Female

DRUGS (2)
  1. ENALAPRIL MALEATE W/HTYDROCHLOROTHIAZIDE (ENALAPRIL MALEATE-HCTZ) [Suspect]
     Indication: HYPERTENSION
     Dosage: (20-12.5 MG DAILY ORAL)
     Route: 048
     Dates: end: 20090202
  2. HYDROCHLOROTHIAZIDE [Suspect]
     Indication: DRUG USE FOR UNKNOWN INDICATION
     Dosage: (12.5 MG QD ORAL)
     Route: 048
     Dates: end: 20090202

REACTIONS (5)
  - BALANCE DISORDER [None]
  - FALL [None]
  - HYPOKALAEMIA [None]
  - HYPONATRAEMIA [None]
  - MUSCULAR WEAKNESS [None]
